FAERS Safety Report 20950945 (Version 3)
Quarter: 2022Q2

REPORT INFORMATION
  Report Type: Report from Study
  Country: CA (occurrence: CA)
  Receive Date: 20220613
  Receipt Date: 20220622
  Transmission Date: 20220721
  Serious: Yes (Life-Threatening, Hospitalization)
  Sender: FDA-Public Use
  Company Number: CA-SERVIER-S22006029

PATIENT

DRUGS (24)
  1. PEGASPARGASE [Suspect]
     Active Substance: PEGASPARGASE
     Indication: B precursor type acute leukaemia
     Dosage: 2500 IU, EVERY 2 WEEKS
     Route: 042
     Dates: start: 20210412
  2. PEGASPARGASE [Suspect]
     Active Substance: PEGASPARGASE
     Dosage: 2000 IU, EVERY 2 WEEKS
     Route: 042
     Dates: start: 20210813, end: 20220303
  3. VINCRISTINE [Concomitant]
     Active Substance: VINCRISTINE
     Indication: B precursor type acute leukaemia
     Dosage: 2 MG/M2, EVERY 3 WEEKS
     Route: 042
     Dates: start: 20210901, end: 20220512
  4. DEXAMETHASONE [Suspect]
     Active Substance: DEXAMETHASONE
     Indication: B precursor type acute leukaemia
     Dosage: 3 MG/M2, BID, D1-D5 OF EVERY 3-WEEK CYCLE
     Route: 065
     Dates: start: 20210901, end: 20220516
  5. MERCAPTOPURINE [Suspect]
     Active Substance: MERCAPTOPURINE
     Indication: B precursor type acute leukaemia
     Dosage: 50 MG/M2, QD, D1-D14 OF EVERY 3-WEEK CYCLE
     Route: 048
     Dates: start: 20210527, end: 20210812
  6. MERCAPTOPURINE [Suspect]
     Active Substance: MERCAPTOPURINE
     Dosage: 40 MG/M2, QD,  D1-D14 OF EVERY 3-WEEK CYCLE
     Route: 048
     Dates: start: 20210901, end: 20211018
  7. MERCAPTOPURINE [Suspect]
     Active Substance: MERCAPTOPURINE
     Dosage: 35 MG/M2, QD,  D1-D14 OF EVERY 3-WEEK CYCLE
     Route: 048
     Dates: start: 20211104, end: 20211201
  8. MERCAPTOPURINE [Suspect]
     Active Substance: MERCAPTOPURINE
     Dosage: 25 MG/M2, QD,  D1-D14 OF EVERY 3-WEEK CYCLE
     Route: 048
     Dates: start: 20211216, end: 20220525
  9. METHOTREXATE [Suspect]
     Active Substance: METHOTREXATE
     Indication: B precursor type acute leukaemia
     Dosage: 30 MG/M2, 1X/WEEK
     Route: 042
     Dates: start: 20220217, end: 20220303
  10. METHOTREXATE [Suspect]
     Active Substance: METHOTREXATE
     Dosage: 25 MG/M2, 1X/WEEK
     Route: 042
     Dates: start: 20220401, end: 20220408
  11. METHOTREXATE [Suspect]
     Active Substance: METHOTREXATE
     Dosage: 20 MG/M2, 1X/WEEK
     Route: 042
     Dates: start: 20220421, end: 20220526
  12. METHOTREXATE [Suspect]
     Active Substance: METHOTREXATE
     Dosage: 12 MG, D1 OF CONSOLIDATION 1A
     Route: 037
     Dates: start: 20210527, end: 20210527
  13. METHOTREXATE [Suspect]
     Active Substance: METHOTREXATE
     Dosage: 5000 MG/M2, D1 OF CONSOLIDATION 1A
     Route: 042
     Dates: start: 20210716, end: 20210716
  14. METHOTREXATE [Suspect]
     Active Substance: METHOTREXATE
     Dosage: 12 MG, EVERY 9 WEEKS
     Route: 037
     Dates: start: 20210423, end: 20220310
  15. DOXORUBICIN [Suspect]
     Active Substance: DOXORUBICIN
     Indication: B precursor type acute leukaemia
     Dosage: 30 MG/M2, D1 OF EVERY 3-WEEK CYCLE
     Route: 042
     Dates: start: 20210901, end: 20220127
  16. DEXRAZOXANE [Suspect]
     Active Substance: DEXRAZOXANE
     Indication: B precursor type acute leukaemia
     Dosage: 300 MG/M2, D1 OF EACH 3 WEEK CYCLE
     Route: 042
     Dates: start: 20210901, end: 20220127
  17. LEUCOVORIN [Suspect]
     Active Substance: LEUCOVORIN
     Indication: B precursor type acute leukaemia
     Dosage: 75 MG/M2
     Route: 042
     Dates: start: 20210717, end: 20210717
  18. LEUCOVORIN [Suspect]
     Active Substance: LEUCOVORIN
     Dosage: 15 MG/M2
     Route: 042
     Dates: start: 20210718, end: 20210719
  19. CYCLOPHOSPHAMIDE [Suspect]
     Active Substance: CYCLOPHOSPHAMIDE
     Indication: B precursor type acute leukaemia
     Dosage: 1000 MG/M2, DAY 1 OF INDUCTION 1B (PART 1 AND 2)
     Route: 042
     Dates: start: 20210527, end: 20210618
  20. MESNA [Suspect]
     Active Substance: MESNA
     Indication: B precursor type acute leukaemia
     Dosage: 200 MG/M2
     Route: 042
     Dates: start: 20210427, end: 20210618
  21. CYTARABINE [Suspect]
     Active Substance: CYTARABINE
     Indication: B precursor type acute leukaemia
     Dosage: 75 MG/M2, QD,  D1-4 AND D8-12 OF INDUCTION 1B (PART 1 AND 2)
     Route: 058
     Dates: start: 20210527, end: 20210628
  22. CYTARABINE [Suspect]
     Active Substance: CYTARABINE
     Dosage: 40 MG, D1 OF INDUCTION 1A
     Route: 037
     Dates: start: 20210401, end: 20210401
  23. CYTARABINE [Suspect]
     Active Substance: CYTARABINE
     Dosage: 40 MG, EVERY 9 WEEKS
     Route: 037
     Dates: start: 20210423, end: 20220310
  24. HYDROCORTISONE [Suspect]
     Active Substance: HYDROCORTISONE
     Indication: B precursor type acute leukaemia
     Dosage: 15 MG, EVERY 9 WEEKS
     Route: 037
     Dates: start: 20210423, end: 20220310

REACTIONS (3)
  - Pneumonia [Unknown]
  - Febrile neutropenia [Unknown]
  - Respiratory tract infection [Unknown]

NARRATIVE: CASE EVENT DATE: 20220529
